FAERS Safety Report 15262107 (Version 1)
Quarter: 2018Q3

REPORT INFORMATION
  Report Type: Spontaneous
  Country: DE (occurrence: DE)
  Receive Date: 20180809
  Receipt Date: 20180809
  Transmission Date: 20181010
  Serious: Yes (Hospitalization)
  Sender: FDA-Public Use
  Company Number: DE-TEVA-2018-DE-937399

PATIENT
  Age: 76 Year
  Sex: Male
  Weight: 92 kg

DRUGS (5)
  1. CLEXANE [Suspect]
     Active Substance: ENOXAPARIN SODIUM
     Route: 065
  2. TACROLIMUS. [Suspect]
     Active Substance: TACROLIMUS
     Indication: RENAL TRANSPLANT
     Dosage: 4 MILLIGRAM DAILY;
     Route: 048
     Dates: start: 20131208
  3. ASPIRIN. [Suspect]
     Active Substance: ASPIRIN
     Route: 065
  4. DECORTIN [Concomitant]
     Active Substance: PREDNISONE
     Dosage: 35 MILLIGRAM DAILY;
     Route: 048
     Dates: start: 20131208
  5. MYFORTIC [Concomitant]
     Active Substance: MYCOPHENOLATE SODIUM
     Dosage: 1140 MILLIGRAM DAILY;
     Route: 048
     Dates: start: 20131208

REACTIONS (1)
  - Urethral stenosis [Recovering/Resolving]

NARRATIVE: CASE EVENT DATE: 20131227
